FAERS Safety Report 6216154-0 (Version None)
Quarter: 2009Q2

REPORT INFORMATION
  Report Type: 
  Country: None (occurrence: None)
  Receive Date: 20090605
  Receipt Date: 20081205
  Transmission Date: 20091009
  Serious: No
  Sender: FDA-Public Use
  Company Number: US-TYCO HEALTHCARE/MALLINCKRODT-T200802129

PATIENT

DRUGS (1)
  1. ACETAMINOPHEN AND HYDROCODONE BITARTRATE [Suspect]
     Dosage: UNK

REACTIONS (2)
  - DRUG INEFFECTIVE [None]
  - HEADACHE [None]
